FAERS Safety Report 14791907 (Version 1)
Quarter: 2018Q2

REPORT INFORMATION
  Report Type: Spontaneous
  Country: US (occurrence: US)
  Receive Date: 20180413
  Receipt Date: 20180413
  Transmission Date: 20180711
  Serious: Yes (Life-Threatening, Hospitalization, Other)
  Sender: FDA-Public Use
  Company Number: None

PATIENT
  Age: 53 Year
  Sex: Male
  Weight: 103.5 kg

DRUGS (11)
  1. LORSARTAN [Concomitant]
  2. PREDNISOLONE. [Concomitant]
     Active Substance: PREDNISOLONE
  3. NOVOLOG [Concomitant]
     Active Substance: INSULIN ASPART
  4. OXYGEN. [Concomitant]
     Active Substance: OXYGEN
  5. CPAP [Concomitant]
     Active Substance: DEVICE
  6. LANTUS [Concomitant]
     Active Substance: INSULIN GLARGINE
  7. HUMIRA [Suspect]
     Active Substance: ADALIMUMAB
     Indication: ANKYLOSING SPONDYLITIS
  8. METROPOLOL SUCCINATE [Concomitant]
  9. ADAVAN [Concomitant]
     Active Substance: UNSPECIFIED INGREDIENT
  10. BENADRYL [Concomitant]
     Active Substance: DIPHENHYDRAMINE HYDROCHLORIDE
  11. PERCOCETE [Concomitant]

REACTIONS (4)
  - Gastrointestinal infection [None]
  - Liver injury [None]
  - Anaphylactic reaction [None]
  - Renal disorder [None]

NARRATIVE: CASE EVENT DATE: 20180328
